FAERS Safety Report 11805622 (Version 1)
Quarter: 2015Q4

REPORT INFORMATION
  Report Type: Spontaneous
  Country: US (occurrence: None)
  Receive Date: 20151204
  Receipt Date: 20151204
  Transmission Date: 20160305
  Serious: Yes (Hospitalization, Other)
  Sender: FDA-Public Use
  Company Number: None

PATIENT
  Age: 56 Year
  Sex: Female
  Weight: 81.65 kg

DRUGS (4)
  1. EFFXOR [Concomitant]
  2. HUMIRA [Suspect]
     Active Substance: ADALIMUMAB
     Indication: PSORIASIS
     Dosage: 1 SHOT EVERY TWO WEEKS
     Route: 030
     Dates: start: 20150925, end: 20151030
  3. VITAMIN D [Concomitant]
     Active Substance: CHOLECALCIFEROL
  4. HUMIRA [Suspect]
     Active Substance: ADALIMUMAB
     Indication: PSORIATIC ARTHROPATHY
     Dosage: 1 SHOT EVERY TWO WEEKS
     Route: 030
     Dates: start: 20150925, end: 20151030

REACTIONS (6)
  - Myocardial infarction [None]
  - Blood pressure increased [None]
  - Dizziness [None]
  - Psoriasis [None]
  - Headache [None]
  - Hypoaesthesia [None]

NARRATIVE: CASE EVENT DATE: 20151106
